FAERS Safety Report 9165615 (Version 1)
Quarter: 2013Q1

REPORT INFORMATION
  Report Type: Report from Study
  Country: US (occurrence: US)
  Receive Date: 20130315
  Receipt Date: 20130315
  Transmission Date: 20140127
  Serious: Yes (Hospitalization)
  Sender: FDA-Public Use
  Company Number: US-ROCHE-1199604

PATIENT
  Age: 70 None
  Sex: Male

DRUGS (3)
  1. CAPECITABINE [Suspect]
     Indication: COLORECTAL CANCER METASTATIC
     Dosage: 4 TABLET EVERY MORNING
     Route: 048
     Dates: start: 20121105, end: 201212
  2. CAPECITABINE [Suspect]
     Dosage: 3 TABLET EVERY EVENING
     Route: 048
     Dates: start: 20121105, end: 201212
  3. RADIATION [Concomitant]

REACTIONS (6)
  - Dehydration [Recovered/Resolved]
  - Malaise [Recovered/Resolved]
  - Tumour excision [Not Recovered/Not Resolved]
  - Appetite disorder [Recovering/Resolving]
  - Weight decreased [Recovering/Resolving]
  - Diarrhoea [Unknown]
